FAERS Safety Report 20729493 (Version 1)
Quarter: 2022Q2

REPORT INFORMATION
  Report Type: Spontaneous
  Country: ID (occurrence: ID)
  Receive Date: 20220420
  Receipt Date: 20220420
  Transmission Date: 20220720
  Serious: No
  Sender: FDA-Public Use
  Company Number: ID-LUPIN PHARMACEUTICALS INC.-2022-05714

PATIENT
  Age: 69 Year
  Sex: Male

DRUGS (18)
  1. AZITHROMYCIN [Suspect]
     Active Substance: AZITHROMYCIN
     Indication: COVID-19
     Dosage: UNK
     Route: 065
     Dates: start: 202003
  2. HYDROXYCHLOROQUINE [Suspect]
     Active Substance: HYDROXYCHLOROQUINE
     Indication: COVID-19
     Dosage: UNK
     Route: 065
     Dates: start: 202003
  3. METHYLPREDNISOLONE [Suspect]
     Active Substance: METHYLPREDNISOLONE
     Indication: COVID-19
     Dosage: UNK
     Route: 065
     Dates: start: 202003
  4. MORPHINE [Suspect]
     Active Substance: MORPHINE
     Indication: COVID-19
     Dosage: UNK
     Route: 065
     Dates: start: 202003
  5. ALBUTEROL SULFATE [Suspect]
     Active Substance: ALBUTEROL SULFATE
     Indication: COVID-19
     Dosage: UNK
     Route: 065
  6. TOCILIZUMAB [Suspect]
     Active Substance: TOCILIZUMAB
     Indication: COVID-19
     Dosage: UNK
     Route: 065
     Dates: start: 202003
  7. VITAMIN C [Suspect]
     Active Substance: ASCORBIC ACID
     Indication: COVID-19
     Dosage: HIGH DOSE
     Route: 065
     Dates: start: 202003
  8. METHYLCOBALAMIN [Suspect]
     Active Substance: METHYLCOBALAMIN
     Indication: COVID-19
     Dosage: UNK
     Route: 065
     Dates: start: 202003
  9. CEFOPERAZONE\SULBACTAM [Suspect]
     Active Substance: CEFOPERAZONE\SULBACTAM
     Indication: COVID-19
     Dosage: UNK
     Route: 065
     Dates: start: 202003
  10. MONTELUKAST SODIUM [Suspect]
     Active Substance: MONTELUKAST SODIUM
     Indication: COVID-19
     Dosage: UNK
     Route: 065
     Dates: start: 202003
  11. ACETYLCYSTEINE [Suspect]
     Active Substance: ACETYLCYSTEINE
     Indication: COVID-19
     Dosage: UNK
     Route: 065
     Dates: start: 202003
  12. DEXMEDETOMIDINE [Suspect]
     Active Substance: DEXMEDETOMIDINE
     Indication: COVID-19
     Dosage: UNK
     Route: 065
  13. FLUCONAZOLE [Suspect]
     Active Substance: FLUCONAZOLE
     Indication: COVID-19
     Dosage: UNK
     Route: 065
     Dates: start: 202003
  14. OMEPRAZOLE [Suspect]
     Active Substance: OMEPRAZOLE
     Indication: COVID-19
     Dosage: UNK
     Route: 065
     Dates: start: 202003
  15. ROCURONIUM [Suspect]
     Active Substance: ROCURONIUM BROMIDE
     Indication: COVID-19
     Dosage: UNK
     Route: 065
     Dates: start: 202003
  16. MIDAZOLAM [Suspect]
     Active Substance: MIDAZOLAM
     Indication: COVID-19
     Dosage: UNK
     Route: 065
     Dates: start: 202003
  17. BROMHEXINE HYDROCHLORIDE [Suspect]
     Active Substance: BROMHEXINE HYDROCHLORIDE
     Indication: COVID-19
     Dosage: UNK
     Route: 065
     Dates: start: 202003
  18. HEPARIN [Concomitant]
     Active Substance: HEPARIN SODIUM
     Indication: Prophylaxis
     Dosage: 250 UNITS/HOUR
     Route: 042
     Dates: start: 20200328, end: 20200408

REACTIONS (1)
  - Off label use [Unknown]
